FAERS Safety Report 5201838-3 (Version None)
Quarter: 2007Q1

REPORT INFORMATION
  Report Type: 
  Country: None (occurrence: None)
  Receive Date: 20070104
  Receipt Date: 20061227
  Transmission Date: 20070707
  Serious: Yes (Hospitalization, Other)
  Sender: FDA-Public Use
  Company Number: 2006SP008902

PATIENT
  Age: 67 Year
  Sex: Female

DRUGS (2)
  1. PEG-INTRON [Suspect]
     Indication: HEPATITIS C
     Dosage: SEE IMAGE
     Route: 058
     Dates: start: 20051101, end: 20051101
  2. PEG-INTRON [Suspect]
     Indication: HEPATITIS C
     Dosage: SEE IMAGE
     Route: 058
     Dates: start: 20050101, end: 20060502

REACTIONS (9)
  - ARTHRITIS [None]
  - COLLAGEN DISORDER [None]
  - DISSEMINATED INTRAVASCULAR COAGULATION [None]
  - INFLAMMATION [None]
  - MOUTH ULCERATION [None]
  - PAROSMIA [None]
  - PLATELET COUNT DECREASED [None]
  - PNEUMONIA [None]
  - SYSTEMIC LUPUS ERYTHEMATOSUS [None]
